FAERS Safety Report 6930997-7 (Version None)
Quarter: 2010Q3

REPORT INFORMATION
  Report Type: 
  Country: None (occurrence: None)
  Receive Date: 20100818
  Receipt Date: 20100804
  Transmission Date: 20110219
  Serious: Yes (Hospitalization)
  Sender: FDA-Public Use
  Company Number: JP-ABBOTT-10P-087-0648361-00

PATIENT
  Age: 62 Year
  Sex: Female

DRUGS (4)
  1. FENOFIBRATE [Suspect]
     Indication: HYPERLIPIDAEMIA
     Dosage: 200 MG DAILY
     Route: 048
     Dates: start: 20100514, end: 20100524
  2. BENIDIPINE HYDROCHLORIDE [Concomitant]
     Indication: PRODUCT USED FOR UNKNOWN INDICATION
     Dates: start: 20080307
  3. RISEDRONATE SODIUM [Concomitant]
     Indication: PRODUCT USED FOR UNKNOWN INDICATION
     Dates: start: 20100401
  4. IMIDAPRIL HYDROCHLORIDE [Concomitant]
     Indication: PRODUCT USED FOR UNKNOWN INDICATION
     Dates: start: 20080222, end: 20080430

REACTIONS (2)
  - DRUG ERUPTION [None]
  - HEPATIC FUNCTION ABNORMAL [None]
